FAERS Safety Report 8567679-4 (Version None)
Quarter: 2012Q3

REPORT INFORMATION
  Report Type: 
  Country: None (occurrence: None)
  Receive Date: 20120803
  Receipt Date: 20120723
  Transmission Date: 20120928
  Serious: Yes (Congenital Anomaly)
  Sender: FDA-Public Use
  Company Number: US-ELI_LILLY_AND_COMPANY-US201208000507

PATIENT
  Sex: Female

DRUGS (1)
  1. CYMBALTA [Suspect]
     Dosage: 30 MG, QD
     Dates: start: 20110820, end: 20120320

REACTIONS (2)
  - CONGENITAL DIAPHRAGMATIC HERNIA [None]
  - FOETAL EXPOSURE DURING PREGNANCY [None]
